FAERS Safety Report 21876830 (Version 4)
Quarter: 2023Q1

REPORT INFORMATION
  Report Type: Other
  Country: GB (occurrence: GB)
  Receive Date: 20230118
  Receipt Date: 20230203
  Transmission Date: 20230418
  Serious: Yes (Other)
  Sender: FDA-Public Use
  Company Number: GB-CELLTRION INC.-2023GB000659

PATIENT

DRUGS (18)
  1. RITUXIMAB [Suspect]
     Active Substance: RITUXIMAB
     Indication: Richter^s syndrome
     Dosage: UNK (ADDITIONAL INFO: ROUTE:UNKNOWN ROUTE:UNKNOWN ROUTE:UNKNOWN ROUTE:UNKNOWN)
     Route: 065
     Dates: start: 20150109, end: 20160201
  2. RITUXIMAB [Suspect]
     Active Substance: RITUXIMAB
     Dosage: UNK (ADDITIONAL INFO: ROUTE:UNKNOWN ROUTE:UNKNOWN ROUTE:UNKNOWN ROUTE:UNKNOWN)
     Route: 065
     Dates: start: 20190111, end: 20200106
  3. RITUXIMAB [Suspect]
     Active Substance: RITUXIMAB
     Dosage: UNK (ADDITIONAL INFO: ROUTE:UNKNOWN ROUTE:UNKNOWN ROUTE:UNKNOWN ROUTE:UNKNOWN)
     Route: 065
     Dates: start: 20200106, end: 20200110
  4. RITUXIMAB [Suspect]
     Active Substance: RITUXIMAB
     Dosage: UNK (ADDITIONAL INFO: ROUTE:UNKNOWN ROUTE:UNKNOWN ROUTE:UNKNOWN ROUTE:UNKNOWN)
     Route: 065
     Dates: start: 20210108, end: 20210109
  5. BENDAMUSTINE [Suspect]
     Active Substance: BENDAMUSTINE
     Indication: Richter^s syndrome
     Dosage: UNK (ADDITIONAL INFO: ROUTE:UNKNOWN)
     Route: 065
     Dates: start: 20210108, end: 20210109
  6. CARBOPLATIN [Suspect]
     Active Substance: CARBOPLATIN
     Indication: Richter^s syndrome
     Dosage: UNK (ADDITIONAL INFO: ROUTE:UNKNOWN)
     Route: 065
     Dates: start: 20200111, end: 20210101
  7. CISPLATIN [Suspect]
     Active Substance: CISPLATIN
     Indication: Richter^s syndrome
     Dosage: UNK (ADDITIONAL INFO: ROUTE:UNKNOWN)
     Route: 065
     Dates: start: 20200111, end: 20210101
  8. CYCLOPHOSPHAMIDE [Suspect]
     Active Substance: CYCLOPHOSPHAMIDE
     Indication: Richter^s syndrome
     Dosage: UNK (ADDITIONAL INFO: ROUTE:UNKNOWN ROUTE:UNKNOWN)
     Route: 065
     Dates: start: 20200106, end: 20200110
  9. CYCLOPHOSPHAMIDE [Suspect]
     Active Substance: CYCLOPHOSPHAMIDE
     Dosage: UNK (ADDITIONAL INFO: ROUTE:UNKNOWN ROUTE:UNKNOWN)
     Route: 065
     Dates: start: 20150109, end: 20160102
  10. DOXORUBICIN [Suspect]
     Active Substance: DOXORUBICIN
     Indication: Richter^s syndrome
     Dosage: UNK (ADDITIONAL INFO: ROUTE:UNKNOWN)
     Route: 065
     Dates: start: 20200106, end: 20200110
  11. FLUDARABINE [Suspect]
     Active Substance: FLUDARABINE PHOSPHATE
     Indication: Richter^s syndrome
     Dosage: UNK (ADDITIONAL INFO: ROUTE:UNKNOWN)
     Route: 065
     Dates: start: 20150109, end: 20160102
  12. GEMCITABINE [Suspect]
     Active Substance: GEMCITABINE
     Indication: Richter^s syndrome
     Dosage: UNK (ADDITIONAL INFO: ROUTE:UNKNOWN)
     Route: 065
     Dates: start: 20200111, end: 20210101
  13. IBRUTINIB [Suspect]
     Active Substance: IBRUTINIB
     Indication: Richter^s syndrome
     Dosage: UNK (ADDITIONAL INFO: ROUTE:UNKNOWN)
     Route: 065
     Dates: start: 20200106, end: 20201110
  14. OXALIPLATIN [Suspect]
     Active Substance: OXALIPLATIN
     Indication: Richter^s syndrome
     Dosage: UNK (ADDITIONAL INFO: ROUTE:UNKNOWN)
     Route: 065
     Dates: start: 20200111, end: 20210101
  15. POLATUZUMAB VEDOTIN [Suspect]
     Active Substance: POLATUZUMAB VEDOTIN
     Indication: Richter^s syndrome
     Dosage: UNK (ADDITIONAL INFO: ROUTE:UNKNOWN)
     Route: 065
     Dates: start: 20210108, end: 20210109
  16. PREDNISONE [Suspect]
     Active Substance: PREDNISONE
     Indication: Richter^s syndrome
     Dosage: UNK (ADDITIONAL INFO: ROUTE:UNKNOWN)
     Route: 065
     Dates: start: 20200106, end: 20200110
  17. VENETOCLAX [Suspect]
     Active Substance: VENETOCLAX
     Indication: Richter^s syndrome
     Dosage: UNK
     Route: 065
     Dates: start: 20190111, end: 20200106
  18. VINCRISTINE [Suspect]
     Active Substance: VINCRISTINE
     Indication: Richter^s syndrome
     Dosage: UNK (ADDITIONAL INFO: ROUTE:UNKNOWN)
     Route: 065
     Dates: start: 20200106, end: 20200110

REACTIONS (3)
  - Richter^s syndrome [Unknown]
  - Off label use [Unknown]
  - Off label use [Unknown]

NARRATIVE: CASE EVENT DATE: 20210108
